FAERS Safety Report 10143977 (Version 1)
Quarter: 2014Q2

REPORT INFORMATION
  Report Type: Spontaneous
  Country: US (occurrence: US)
  Receive Date: 20140430
  Receipt Date: 20140430
  Transmission Date: 20141212
  Serious: Yes (Other)
  Sender: FDA-Public Use
  Company Number: ALCN2014US002513

PATIENT
  Age: 75 Year
  Sex: Female

DRUGS (7)
  1. SYSTANE LONG LASTING [Suspect]
     Dosage: UNK
     Route: 047
     Dates: start: 20140310
  2. PREDNISOLONE ACETATE [Concomitant]
     Indication: POSTOPERATIVE CARE
     Dosage: UNK
     Route: 047
     Dates: start: 20140310
  3. OFLOXACIN [Concomitant]
     Indication: PREOPERATIVE CARE
     Dosage: UNK
     Route: 047
     Dates: start: 20140310
  4. BRIMONIDINE [Concomitant]
     Indication: EYE INFLAMMATION
     Dosage: 1 GTT, BID
     Route: 047
     Dates: start: 20140310
  5. DORZOLAMIDE [Concomitant]
     Indication: EYE INFLAMMATION
     Dosage: 1 GTT, QID
     Route: 047
     Dates: start: 20140310, end: 20140331
  6. RESTASIS [Concomitant]
     Indication: PREOPERATIVE CARE
     Dosage: 1 GTT, BID
     Route: 047
     Dates: start: 20140303
  7. BROMFENAC [Concomitant]
     Dosage: UNK
     Dates: start: 20140403

REACTIONS (7)
  - Corneal scar [Unknown]
  - Eye pain [Not Recovered/Not Resolved]
  - Vision blurred [Not Recovered/Not Resolved]
  - Visual impairment [Not Recovered/Not Resolved]
  - Photophobia [Not Recovered/Not Resolved]
  - Corneal dystrophy [Unknown]
  - Astigmatism [Unknown]
